FAERS Safety Report 4407369-2 (Version None)
Quarter: 2004Q3

REPORT INFORMATION
  Report Type: 
  Country: None (occurrence: None)
  Receive Date: 20040721
  Receipt Date: 20040707
  Transmission Date: 20050211
  Serious: Yes (Hospitalization)
  Sender: FDA-Public Use
  Company Number: 2004-DE-03758GD(0)

PATIENT
  Age: 73 Year
  Sex: Male

DRUGS (4)
  1. CYCLOPHOSPHAMIDE [Suspect]
     Indication: LYMPHOMA
  2. PREDNISONE [Suspect]
     Indication: LYMPHOMA
  3. DOXORUBICIN(DOXORUBICIN) [Suspect]
     Indication: LYMPHOMA
  4. VINCRISTINE [Suspect]
     Indication: LYMPHOMA

REACTIONS (7)
  - GASTRIC VARICES [None]
  - HAEMATOCRIT DECREASED [None]
  - HAEMOGLOBIN DECREASED [None]
  - HEART RATE INCREASED [None]
  - MELAENA [None]
  - ORTHOSTATIC HYPOTENSION [None]
  - SPLENIC VEIN THROMBOSIS [None]
